FAERS Safety Report 9229092 (Version 2)
Quarter: 2013Q2

REPORT INFORMATION
  Report Type: Spontaneous
  Country: US (occurrence: US)
  Receive Date: 20130412
  Receipt Date: 20130614
  Transmission Date: 20140414
  Serious: Yes (Other)
  Sender: FDA-Public Use
  Company Number: US-ELI_LILLY_AND_COMPANY-US201303008423

PATIENT
  Age: 69 Year
  Sex: Male
  Weight: 94.33 kg

DRUGS (16)
  1. AXIRON [Suspect]
     Indication: BLOOD TESTOSTERONE DECREASED
     Dosage: 60 MG, QD
     Route: 061
     Dates: start: 201201
  2. AXIRON [Suspect]
     Dosage: 30MG, EVERY OTHER DAY
  3. FLONASE [Concomitant]
     Dosage: UNK, UNKNOWN
     Route: 065
  4. LITHIUM [Concomitant]
     Dosage: UNK, UNKNOWN
     Route: 065
  5. GABAPENTIN [Concomitant]
     Dosage: UNK, UNKNOWN
     Route: 065
  6. SIMVASTATIN [Concomitant]
     Dosage: UNK, UNKNOWN
     Route: 065
  7. LATANOPROST [Concomitant]
     Dosage: UNK, UNKNOWN
     Route: 065
  8. FISH OIL [Concomitant]
     Dosage: UNK, UNKNOWN
     Route: 065
  9. VITAMIN D [Concomitant]
     Dosage: 1000 DF, BID
     Route: 065
  10. SPIRONOLACTONE [Concomitant]
     Dosage: UNK, UNKNOWN
     Route: 065
  11. LASIX [Concomitant]
     Dosage: UNK, UNKNOWN
     Route: 065
  12. KCL [Concomitant]
     Dosage: UNK, UNKNOWN
     Route: 065
  13. FERROUS SULFATE [Concomitant]
     Dosage: UNK, UNKNOWN
     Route: 065
  14. OMEPRAZOLE [Concomitant]
     Dosage: UNK, UNKNOWN
     Route: 065
  15. MULTIVITAMIN [Concomitant]
     Dosage: UNK, UNKNOWN
     Route: 065
  16. METFORMIN [Concomitant]
     Dosage: UNK, UNKNOWN
     Route: 065

REACTIONS (7)
  - Weight increased [Recovering/Resolving]
  - Ejaculation failure [Not Recovered/Not Resolved]
  - Scrotal swelling [Recovered/Resolved]
  - Aggression [Unknown]
  - Local swelling [Unknown]
  - Libido increased [Recovering/Resolving]
  - Prostatic specific antigen increased [Unknown]
